FAERS Safety Report 7867543-X (Version None)
Quarter: 2011Q4

REPORT INFORMATION
  Report Type: 
  Country: None (occurrence: None)
  Receive Date: 20111028
  Receipt Date: 20111021
  Transmission Date: 20120403
  Serious: Yes (Hospitalization)
  Sender: FDA-Public Use
  Company Number: PHHY2011FI93868

PATIENT
  Sex: Male

DRUGS (10)
  1. COHEMIN DEPOT [Concomitant]
     Indication: PERNICIOUS ANAEMIA
     Dosage: UNK UKN, UNK
     Route: 030
  2. REQUIP CR [Interacting]
     Indication: PARKINSON'S DISEASE
     Dosage: 24 MG, UNK
     Dates: start: 20091130
  3. ASPIRIN AND DIPYRIDAMOLE [Concomitant]
     Dosage: 2 DF, UNK
  4. SINEMET [Interacting]
     Indication: PARKINSON'S DISEASE
     Dosage: 2 DF, UNK
     Dates: start: 20090306
  5. JANUVIA [Interacting]
     Indication: DIABETES MELLITUS
     Dosage: 100 MG, UNK
     Dates: start: 20110217, end: 20110516
  6. MADOPAR QUICK [Interacting]
     Indication: PARKINSON'S DISEASE
     Dosage: 1.5 DF, UNK
     Dates: start: 20090901
  7. RETAFER [Concomitant]
     Indication: IRON DEFICIENCY
     Dosage: 100 MG, UNK
  8. ENTACAPONE [Suspect]
     Indication: PARKINSON'S DISEASE
     Dosage: 1 G, PER DAY
     Route: 048
     Dates: start: 20090306
  9. FURESIS [Concomitant]
     Dosage: 40 MG, UNK
  10. SINEMET [Interacting]
     Indication: PARKINSON'S DISEASE
     Dosage: 5 DF, UNK
     Dates: start: 20090306

REACTIONS (6)
  - FALL [None]
  - NAUSEA [None]
  - VOMITING [None]
  - OEDEMA [None]
  - DRUG INTERACTION [None]
  - WEIGHT DECREASED [None]
